FAERS Safety Report 20343619 (Version 3)
Quarter: 2022Q1

REPORT INFORMATION
  Report Type: Report from Study
  Country: CA (occurrence: CA)
  Receive Date: 20220118
  Receipt Date: 20220314
  Transmission Date: 20220424
  Serious: Yes (Other)
  Sender: FDA-Public Use
  Company Number: CA-JNJFOC-20220121535

PATIENT
  Age: 14 Year
  Sex: Female

DRUGS (2)
  1. REMICADE [Suspect]
     Active Substance: INFLIXIMAB
     Indication: Colitis ulcerative
     Dosage: ON 11-JAN-2022, THE PATIENT RECEIVED 3RD INFLIXIMAB INFUSION FOR DOSE OF 400 MG.
     Route: 042
     Dates: start: 20211214
  2. PREDNISONE [Concomitant]
     Active Substance: PREDNISONE
     Indication: Product used for unknown indication
     Route: 065

REACTIONS (8)
  - Haematochezia [Recovered/Resolved]
  - Infusion related reaction [Unknown]
  - General physical health deterioration [Unknown]
  - Chest discomfort [Recovering/Resolving]
  - Increased viscosity of upper respiratory secretion [Unknown]
  - Pain [Unknown]
  - Change of bowel habit [Recovering/Resolving]
  - Headache [Unknown]

NARRATIVE: CASE EVENT DATE: 20220109
